FAERS Safety Report 17587236 (Version 1)
Quarter: 2020Q1

REPORT INFORMATION
  Report Type: Report from Study
  Country: US (occurrence: US)
  Receive Date: 20200326
  Receipt Date: 20200326
  Transmission Date: 20200409
  Serious: Yes (Other)
  Sender: FDA-Public Use
  Company Number: US-JAZZ-2017-US-011479

PATIENT
  Sex: Female

DRUGS (38)
  1. XYREM [Suspect]
     Active Substance: SODIUM OXYBATE
     Indication: CATAPLEXY
     Dosage: 3 G, BID
     Route: 048
     Dates: start: 201608
  2. ALLEGRA [Concomitant]
     Active Substance: FEXOFENADINE HYDROCHLORIDE
  3. SINGULAIR [Concomitant]
     Active Substance: MONTELUKAST SODIUM
  4. TOPAMAX [Concomitant]
     Active Substance: TOPIRAMATE
  5. SYNTHROID [Concomitant]
     Active Substance: LEVOTHYROXINE SODIUM
  6. XYREM [Suspect]
     Active Substance: SODIUM OXYBATE
     Indication: NARCOLEPSY
     Dosage: 2.25 G, BID
     Route: 048
     Dates: start: 201606, end: 201608
  7. CHANTIX [Concomitant]
     Active Substance: VARENICLINE TARTRATE
  8. LOVAZA [Concomitant]
     Active Substance: OMEGA-3-ACID ETHYL ESTERS
  9. DDAVP [Concomitant]
     Active Substance: DESMOPRESSIN ACETATE
  10. LYRICA [Concomitant]
     Active Substance: PREGABALIN
  11. ERYTHROMYCIN. [Concomitant]
     Active Substance: ERYTHROMYCIN
  12. ALREX [ALPRAZOLAM] [Concomitant]
  13. INDERAL [Concomitant]
     Active Substance: PROPRANOLOL HYDROCHLORIDE
  14. ARAVA [Concomitant]
     Active Substance: LEFLUNOMIDE
  15. ZANAFLEX [Concomitant]
     Active Substance: TIZANIDINE HYDROCHLORIDE
  16. ASTELIN [DIPROPHYLLINE] [Concomitant]
  17. AMBIEN [Concomitant]
     Active Substance: ZOLPIDEM TARTRATE
  18. FIORICET [Concomitant]
     Active Substance: ACETAMINOPHEN\BUTALBITAL\CAFFEINE
  19. RELPAX [Concomitant]
     Active Substance: ELETRIPTAN HYDROBROMIDE
  20. TOPROL XL [Concomitant]
     Active Substance: METOPROLOL SUCCINATE
  21. SPIRONOLACTONE. [Concomitant]
     Active Substance: SPIRONOLACTONE
  22. QVAR [Concomitant]
     Active Substance: BECLOMETHASONE DIPROPIONATE
  23. PROAIR HFA [Concomitant]
     Active Substance: ALBUTEROL SULFATE
  24. CYANOCOBALAMIN. [Concomitant]
     Active Substance: CYANOCOBALAMIN
  25. MOBIC [Concomitant]
     Active Substance: MELOXICAM
  26. OMEPRAZOLE. [Concomitant]
     Active Substance: OMEPRAZOLE
  27. WELCHOL [Concomitant]
     Active Substance: COLESEVELAM HYDROCHLORIDE
  28. FLONASE [MOMETASONE FUROATE] [Concomitant]
     Active Substance: MOMETASONE FUROATE
  29. LEUCOVORIN CALCIUM. [Concomitant]
     Active Substance: LEUCOVORIN CALCIUM
  30. LO LOESTRIN FE [Concomitant]
     Active Substance: ETHINYL ESTRADIOL\NORETHINDRONE ACETATE
  31. VITAMIN C [Concomitant]
     Active Substance: ASCORBIC ACID
  32. CYTOMEL [Concomitant]
     Active Substance: LIOTHYRONINE SODIUM
  33. PROVIGIL [Concomitant]
     Active Substance: MODAFINIL
  34. METHOTREXATE. [Concomitant]
     Active Substance: METHOTREXATE
  35. CELEXA [Concomitant]
     Active Substance: CITALOPRAM HYDROBROMIDE
  36. CIPRODEX [Concomitant]
     Active Substance: CIPROFLOXACIN HYDROCHLORIDE\DEXAMETHASONE
  37. CORTEF [Concomitant]
     Active Substance: HYDROCORTISONE
  38. VITAMIN D3 [Concomitant]
     Active Substance: CHOLECALCIFEROL

REACTIONS (4)
  - Hepatic steatosis [Recovered/Resolved]
  - Back pain [Unknown]
  - Obesity [Recovering/Resolving]
  - Pre-existing condition improved [Unknown]
